FAERS Safety Report 22322137 (Version 1)
Quarter: 2023Q2

REPORT INFORMATION
  Report Type: Spontaneous
  Country: US (occurrence: None)
  Receive Date: 20230516
  Receipt Date: 20230516
  Transmission Date: 20230721
  Serious: No
  Sender: FDA-Public Use
  Company Number: US-Hikma Pharmaceuticals USA Inc.-US-H14001-23-00075

PATIENT
  Age: 36 Year
  Sex: Female

DRUGS (6)
  1. PREDNISONE [Suspect]
     Active Substance: PREDNISONE
     Indication: Product used for unknown indication
     Dosage: ^^TAPER PLAN^^
     Route: 065
  2. TAVNEOS [Suspect]
     Active Substance: AVACOPAN
     Indication: Vasculitis
     Route: 048
     Dates: start: 202212
  3. TAVNEOS [Suspect]
     Active Substance: AVACOPAN
     Indication: Renal disorder
  4. TAVNEOS [Suspect]
     Active Substance: AVACOPAN
     Indication: Lung disorder
  5. RITUXIMAB [Concomitant]
     Active Substance: RITUXIMAB
     Indication: Product used for unknown indication
     Dosage: UNKNOWN
     Route: 041
     Dates: start: 20221214, end: 20221214
  6. AZATHIOPRINE [Concomitant]
     Active Substance: AZATHIOPRINE
     Indication: Product used for unknown indication
     Dosage: UNKNOWN
     Route: 065

REACTIONS (4)
  - Hot flush [Unknown]
  - Increased appetite [Unknown]
  - Abdominal pain upper [Unknown]
  - Gastrointestinal disorder [Unknown]

NARRATIVE: CASE EVENT DATE: 20221201
